FAERS Safety Report 23657005 (Version 3)
Quarter: 2024Q1

REPORT INFORMATION
  Report Type: Spontaneous
  Country: US (occurrence: US)
  Receive Date: 20240321
  Receipt Date: 20240328
  Transmission Date: 20240409
  Serious: No
  Sender: FDA-Public Use
  Company Number: US-PFIZER INC-202400053131

PATIENT
  Age: 56 Year
  Sex: Female

DRUGS (2)
  1. PREMARIN [Suspect]
     Active Substance: ESTROGENS, CONJUGATED
     Indication: Menopause
     Dosage: 0.5MG TWICE A WEEK, DO IT TO THE FIRST LINE ON THE APPLICATOR
     Route: 067
     Dates: start: 20230705
  2. OXYBUTYNIN [Concomitant]
     Active Substance: OXYBUTYNIN\OXYBUTYNIN CHLORIDE
     Indication: Hypertonic bladder
     Dosage: 15 MG, 1X/DAY
     Route: 048

REACTIONS (7)
  - Vulvovaginal erythema [Unknown]
  - Vulvovaginal discomfort [Unknown]
  - Vulvovaginal pain [Unknown]
  - Vulvovaginal mycotic infection [Unknown]
  - Dysmenorrhoea [Unknown]
  - Condition aggravated [Unknown]
  - Product sterility issue [Unknown]
